FAERS Safety Report 5841716-X (Version None)
Quarter: 2008Q3

REPORT INFORMATION
  Report Type: 
  Country: None (occurrence: None)
  Receive Date: 20080812
  Receipt Date: 20080801
  Transmission Date: 20090109
  Serious: Yes (Hospitalization)
  Sender: FDA-Public Use
  Company Number: NSADSS2002046508

PATIENT
  Sex: Female
  Weight: 92.99 kg

DRUGS (32)
  1. CISAPRIDE [Suspect]
     Route: 048
     Dates: start: 20010626
  2. CISAPRIDE [Suspect]
     Indication: GASTROOESOPHAGEAL REFLUX DISEASE
     Route: 048
     Dates: start: 20010626
  3. PREMPHASE 14/14 [Concomitant]
     Indication: HORMONE THERAPY
     Route: 048
  4. ACIPHEX [Concomitant]
     Route: 048
  5. ACIPHEX [Concomitant]
     Indication: GASTROOESOPHAGEAL REFLUX DISEASE
     Route: 048
  6. LOTENSIN [Concomitant]
     Indication: HYPERTENSION
     Route: 048
  7. HYDROCHLOROTHIAZIDE [Concomitant]
     Indication: HYPERTENSION
     Route: 048
  8. MULTI-VITAMIN [Concomitant]
     Route: 048
  9. CALCIUM [Concomitant]
     Indication: PROPHYLAXIS
     Route: 051
  10. ZYRTEC [Concomitant]
     Indication: SEASONAL ALLERGY
     Route: 048
  11. DARVOCET [Concomitant]
     Indication: PAIN
     Route: 048
  12. CARAFATE [Concomitant]
     Route: 048
  13. CARAFATE [Concomitant]
     Indication: GASTROOESOPHAGEAL REFLUX DISEASE
     Route: 048
  14. BELLADONNA [Concomitant]
     Indication: ABDOMINAL PAIN
     Route: 048
  15. CHARCOAL PLUS [Concomitant]
     Indication: FLATULENCE
     Route: 048
  16. ALBUTEROL [Concomitant]
     Indication: ASTHMA
  17. TIGAN [Concomitant]
     Route: 048
  18. TIGAN [Concomitant]
     Route: 048
  19. TIGAN [Concomitant]
     Indication: NAUSEA
     Route: 048
  20. ZOFRAN [Concomitant]
     Indication: NAUSEA
     Route: 048
     Dates: start: 20010904
  21. TUSSIN [Concomitant]
     Indication: COUGH
     Route: 048
  22. ZITHROMAX [Concomitant]
     Indication: BRONCHITIS
     Route: 048
  23. ZITHROMAX [Concomitant]
  24. ALDACTONE [Concomitant]
     Indication: OEDEMA
     Route: 048
  25. HYDROXYZINE [Concomitant]
     Indication: PRURITUS
  26. CYTOTEC [Concomitant]
     Route: 048
  27. CYTOTEC [Concomitant]
     Indication: CONSTIPATION
     Route: 048
  28. ROBINUL FORTE [Concomitant]
     Indication: ABDOMINAL PAIN
     Route: 048
  29. AZMACORT [Concomitant]
     Indication: ASTHMA
     Route: 055
  30. XANAX [Concomitant]
     Indication: ANXIETY
     Route: 048
  31. ATIVAN [Concomitant]
     Indication: ANXIETY
     Route: 048
  32. DEPAKOTE [Concomitant]
     Indication: DRUG THERAPY
     Route: 048

REACTIONS (3)
  - DEPRESSION [None]
  - HAEMORRHOID OPERATION [None]
  - MENTAL DISORDER [None]
